FAERS Safety Report 10102256 (Version 1)
Quarter: 2014Q2

REPORT INFORMATION
  Report Type: Spontaneous
  Country: US (occurrence: US)
  Receive Date: 20140424
  Receipt Date: 20140424
  Transmission Date: 20141212
  Serious: No
  Sender: FDA-Public Use
  Company Number: US-PFIZER INC-2014112807

PATIENT
  Age: 77 Year
  Sex: Female
  Weight: 96.2 kg

DRUGS (1)
  1. PREMARIN [Suspect]
     Dosage: 0.625 MG, DAILY
     Route: 048
     Dates: start: 2003

REACTIONS (2)
  - Expired product administered [Unknown]
  - Drug ineffective [Unknown]
